FAERS Safety Report 6444491-3 (Version None)
Quarter: 2009Q4

REPORT INFORMATION
  Report Type: 
  Country: None (occurrence: None)
  Receive Date: 20091118
  Receipt Date: 20091106
  Transmission Date: 20100525
  Serious: Yes (Other)
  Sender: FDA-Public Use
  Company Number: BR-BAYER-200923922LA

PATIENT
  Age: 40 Year
  Sex: Female
  Weight: 62 kg

DRUGS (4)
  1. YASMIN [Suspect]
     Indication: CONTRACEPTION
     Route: 048
     Dates: start: 20091021, end: 20091104
  2. DEPAKOTE [Concomitant]
     Indication: BIPOLAR DISORDER
     Route: 048
     Dates: start: 20040101, end: 20091030
  3. LEXAPRO [Concomitant]
     Indication: BIPOLAR DISORDER
     Dosage: TOTAL DAILY DOSE: 10 MG  UNIT DOSE: 10 MG
     Route: 048
     Dates: end: 20091030
  4. DIANE 35 [Concomitant]
     Indication: CONTRACEPTION
     Route: 048
     Dates: end: 20091001

REACTIONS (8)
  - ABASIA [None]
  - DYSARTHRIA [None]
  - ERYTHEMA [None]
  - MENTAL IMPAIRMENT [None]
  - MUSCLE DISORDER [None]
  - SLUGGISHNESS [None]
  - SOMNOLENCE [None]
  - SPEECH DISORDER [None]
